FAERS Safety Report 8093471-3 (Version None)
Quarter: 2012Q1

REPORT INFORMATION
  Report Type: 
  Country: None (occurrence: None)
  Receive Date: 20120129
  Receipt Date: 20110916
  Transmission Date: 20120608
  Serious: No
  Sender: FDA-Public Use
  Company Number: US-ABBOTT-11P-163-0851283-00

PATIENT
  Sex: Female
  Weight: 57.658 kg

DRUGS (6)
  1. BC POWDER [Concomitant]
     Indication: HEADACHE
  2. HUMIRA [Suspect]
     Dates: start: 20110824, end: 20110824
  3. EXCEDRIN [Concomitant]
     Indication: HEADACHE
  4. UNKNOWN OVER THE COUNTER MEDICATION [Concomitant]
     Indication: HEADACHE
  5. HUMIRA [Suspect]
     Indication: PSORIASIS
     Dates: start: 20110701, end: 20110701
  6. HUMIRA [Suspect]
     Dates: start: 20110901

REACTIONS (11)
  - INJECTION SITE PRURITUS [None]
  - OROPHARYNGEAL PAIN [None]
  - INJECTION SITE VESICLES [None]
  - INJECTION SITE HAEMATOMA [None]
  - INJECTION SITE WARMTH [None]
  - INJECTION SITE SWELLING [None]
  - NASOPHARYNGITIS [None]
  - NAUSEA [None]
  - INJECTION SITE ERYTHEMA [None]
  - INJECTION SITE URTICARIA [None]
  - RESPIRATORY TRACT CONGESTION [None]
